FAERS Safety Report 15058484 (Version 2)
Quarter: 2018Q2

REPORT INFORMATION
  Report Type: Spontaneous
  Country: BE (occurrence: NL)
  Receive Date: 20180625
  Receipt Date: 20180625
  Transmission Date: 20180711
  Serious: Yes (Hospitalization)
  Sender: FDA-Public Use
  Company Number: PHHY2018NL027410

PATIENT
  Age: 45 Year
  Sex: Male
  Weight: 88 kg

DRUGS (7)
  1. DUPILUMAB [Suspect]
     Active Substance: DUPILUMAB
     Indication: DERMATITIS ATOPIC
     Dosage: 300 MG, Q2W
     Route: 058
  2. DUPILUMAB [Suspect]
     Active Substance: DUPILUMAB
     Dosage: 1 UNK, Q2W
     Route: 058
     Dates: start: 20180316
  3. BETAMETHASONE. [Concomitant]
     Active Substance: BETAMETHASONE
     Indication: PROPHYLAXIS
     Dosage: 400 G, UNK (400 G TOTAL DOSE PRESCRIBED AND NO. OF TUBES PER WEEK 14NO OF TUBES PER DAY 2)
     Route: 061
  4. FLUTICASONE. [Concomitant]
     Active Substance: FLUTICASONE
     Indication: PROPHYLAXIS
     Dosage: TOTAL DOSE PRESCRIBED: 100 GNO. OF TUBES PER WEEK 7 AND NO. OF TUBES PER DAY: 1
     Route: 061
  5. TEMAZEPAM. [Concomitant]
     Active Substance: TEMAZEPAM
     Indication: DERMATITIS ATOPIC
     Dosage: TOTAL DOSE PRESCRIBED: 20 MGNO OF TUBES PER WEEK: 7 AND NO OF TUBES PER DAY: 1
     Route: 048
  6. CICLOSPORIN [Suspect]
     Active Substance: CYCLOSPORINE
     Indication: PRODUCT USED FOR UNKNOWN INDICATION
     Route: 065
  7. DUPILUMAB [Suspect]
     Active Substance: DUPILUMAB
     Dosage: 600 MG, UNK (TOTAL)
     Route: 058
     Dates: start: 20180302, end: 20180302

REACTIONS (1)
  - Dermatitis atopic [Recovered/Resolved with Sequelae]

NARRATIVE: CASE EVENT DATE: 20180316
